FAERS Safety Report 12656187 (Version 1)
Quarter: 2016Q3

REPORT INFORMATION
  Report Type: Spontaneous
  Country: US (occurrence: US)
  Receive Date: 20160816
  Receipt Date: 20160816
  Transmission Date: 20161109
  Serious: No
  Sender: FDA-Public Use
  Company Number: US-GALDERMA-US15005710

PATIENT
  Sex: Female

DRUGS (1)
  1. METROGEL [Suspect]
     Active Substance: METRONIDAZOLE
     Dosage: 1%
     Route: 061

REACTIONS (3)
  - Inappropriate schedule of drug administration [Unknown]
  - Expired product administered [Recovered/Resolved]
  - Drug ineffective [Unknown]
